FAERS Safety Report 5835542-5 (Version None)
Quarter: 2008Q3

REPORT INFORMATION
  Report Type: 
  Country: None (occurrence: None)
  Receive Date: 20080806
  Receipt Date: 20080729
  Transmission Date: 20090109
  Serious: Yes (Other)
  Sender: FDA-Public Use
  Company Number: B0522842A

PATIENT
  Age: 29 Year
  Sex: Female
  Weight: 54 kg

DRUGS (6)
  1. RETROVIR [Suspect]
     Indication: HIV INFECTION
     Route: 065
  2. TELZIR [Suspect]
     Indication: HIV INFECTION
     Route: 065
  3. COMBIVIR [Suspect]
     Indication: HIV INFECTION
     Dosage: 1TAB TWICE PER DAY
     Route: 048
     Dates: start: 20080104, end: 20080404
  4. VIDEX [Suspect]
     Indication: HIV INFECTION
     Route: 065
  5. NORVIR [Suspect]
     Indication: HIV INFECTION
     Route: 065
  6. KALETRA [Suspect]
     Indication: HIV INFECTION
     Dosage: 2TAB TWICE PER DAY
     Route: 048
     Dates: start: 20080104, end: 20080404

REACTIONS (7)
  - ABORTION INDUCED [None]
  - AMNIOCENTESIS ABNORMAL [None]
  - DRUG EXPOSURE DURING PREGNANCY [None]
  - HAEMOGLOBIN DECREASED [None]
  - PATERNAL DRUGS AFFECTING FOETUS [None]
  - PLACENTAL DISORDER [None]
  - PREGNANCY [None]
